FAERS Safety Report 13166752 (Version 1)
Quarter: 2017Q1

REPORT INFORMATION
  Report Type: Spontaneous
  Country: US (occurrence: US)
  Receive Date: 20170131
  Receipt Date: 20170131
  Transmission Date: 20170428
  Serious: Yes (Other)
  Sender: FDA-Public Use
  Company Number: US-BAXTER-2017BAX003458

PATIENT
  Age: 38 Year
  Sex: Female
  Weight: 94.8 kg

DRUGS (9)
  1. SYNTHROID [Suspect]
     Active Substance: LEVOTHYROXINE SODIUM
     Indication: BLOOD THYROID STIMULATING HORMONE DECREASED
     Dosage: STARTED 9 YEARS AGO
     Route: 065
  2. LORTAB [Suspect]
     Active Substance: ACETAMINOPHEN\HYDROCODONE BITARTRATE
     Indication: PRODUCT USED FOR UNKNOWN INDICATION
     Route: 065
  3. CYCLOBENZAPRINE [Suspect]
     Active Substance: CYCLOBENZAPRINE
     Indication: MUSCLE SPASMS
  4. ATENOLOL. [Suspect]
     Active Substance: ATENOLOL
     Indication: BLOOD PRESSURE ABNORMAL
     Dosage: USING THIS PRODUCT FOR 6 YEARS
     Route: 065
  5. CYCLOPHOSPHAMIDE FOR INJECTION, USP [Suspect]
     Active Substance: CYCLOPHOSPHAMIDE
     Indication: PRODUCT USED FOR UNKNOWN INDICATION
     Route: 065
  6. CYCLOBENZAPRINE [Suspect]
     Active Substance: CYCLOBENZAPRINE
     Indication: MYALGIA
     Dosage: TAKING FOR 7-8 YEARS
     Route: 065
  7. FUROSEMIDE. [Suspect]
     Active Substance: FUROSEMIDE
     Indication: FLUID RETENTION
     Dosage: TAKING FROM 4-5 YEARS
     Route: 065
  8. LYRICA [Suspect]
     Active Substance: PREGABALIN
     Indication: FIBROMYALGIA
     Route: 048
     Dates: start: 20161220
  9. TYLOX [Suspect]
     Active Substance: ACETAMINOPHEN\OXYCODONE HYDROCHLORIDE
     Indication: PRODUCT USED FOR UNKNOWN INDICATION
     Route: 065

REACTIONS (15)
  - Myalgia [Unknown]
  - Fibromyalgia [Unknown]
  - Somnolence [Not Recovered/Not Resolved]
  - Mobility decreased [Recovered/Resolved]
  - Muscle spasms [Unknown]
  - Adverse drug reaction [Unknown]
  - Feeling abnormal [Recovered/Resolved]
  - Adverse reaction [Unknown]
  - Constipation [Recovered/Resolved]
  - Blood pressure abnormal [Unknown]
  - Hypokinesia [Recovered/Resolved]
  - Breast cancer [Unknown]
  - Somnolence [Recovered/Resolved]
  - Hypersensitivity [Unknown]
  - Fluid retention [Unknown]

NARRATIVE: CASE EVENT DATE: 199410
